FAERS Safety Report 10374595 (Version 2)
Quarter: 2014Q3

REPORT INFORMATION
  Report Type: Spontaneous
  Country: US (occurrence: US)
  Receive Date: 20140811
  Receipt Date: 20140811
  Transmission Date: 20150326
  Serious: No
  Sender: FDA-Public Use
  Company Number: US-TEVA-497802USA

PATIENT
  Sex: Female

DRUGS (1)
  1. OXYMORPHONE HYDROCHLORIDE. [Suspect]
     Active Substance: OXYMORPHONE HYDROCHLORIDE
     Indication: BACK PAIN
     Dates: start: 20140716

REACTIONS (5)
  - Drug effect decreased [Unknown]
  - Drug ineffective [Unknown]
  - Inappropriate schedule of drug administration [Unknown]
  - Product formulation issue [Unknown]
  - Back pain [Unknown]

NARRATIVE: CASE EVENT DATE: 20140716
